FAERS Safety Report 10228309 (Version 1)
Quarter: 2014Q2

REPORT INFORMATION
  Report Type: Spontaneous
  Country: US (occurrence: None)
  Receive Date: 20140609
  Receipt Date: 20140609
  Transmission Date: 20141212
  Serious: No
  Sender: FDA-Public Use
  Company Number: None

PATIENT
  Age: 29 Year
  Sex: Female
  Weight: 57.61 kg

DRUGS (2)
  1. SCOPOLAMINE [Suspect]
     Indication: PROPHYLAXIS AGAINST MOTION SICKNESS
     Dosage: 1 PATCH EVERY 3 DAYS APPLIED TO A SURFACE, USUALLY THE SKIN
     Route: 061
     Dates: start: 20140523, end: 20140601
  2. SCOPOLAMINE [Suspect]
     Dosage: 1 PATCH EVERY 3 DAYS APPLIED TO A SURFACE, USUALLY THE SKIN
     Route: 061
     Dates: start: 20140523, end: 20140601

REACTIONS (2)
  - Nausea [None]
  - Dizziness [None]
